FAERS Safety Report 7745311 (Version 4)
Quarter: 2013Q2

REPORT INFORMATION
  Report Type: Report from Study
  Country: US (occurrence: US)
  Receive Date: 20101231
  Receipt Date: 20130419
  Transmission Date: 20140414
  Serious: Yes (Hospitalization)
  Sender: FDA-Public Use
  Company Number: US-ACTELION-A-US2010-43061

PATIENT
  Age: 65 Year
  Sex: Male

DRUGS (20)
  1. GLUCOSAMINE [Concomitant]
  2. FINASTERIDE [Concomitant]
  3. ALBUTEROL [Concomitant]
  4. MIRTAZAPINE [Concomitant]
  5. PREDNISONE [Concomitant]
  6. LORAZEPAM [Concomitant]
  7. PANTOPRAZOLE [Concomitant]
  8. SPIRIVA [Concomitant]
  9. STARLIX [Concomitant]
  10. CRESTOR [Concomitant]
  11. CALCIUM + VITAMIN D [Concomitant]
  12. TRACLEER [Suspect]
     Indication: PULMONARY ARTERIAL HYPERTENSION
     Dosage: 125 MG, BID
     Route: 048
     Dates: start: 200910
  13. REVATIO [Concomitant]
  14. FLUOXETINE [Concomitant]
  15. DICLOFENAC NA [Concomitant]
  16. METFORMIN [Concomitant]
     Indication: ESSENTIAL HYPERTENSION
  17. ASPIRIN [Concomitant]
  18. AZATHIOPRINE [Concomitant]
  19. ASTELIN [Concomitant]
  20. SIMBICORT TURBUHALER [Concomitant]

REACTIONS (15)
  - Diverticulitis [Unknown]
  - Pneumonia [Unknown]
  - Bronchitis [Unknown]
  - Cough [Unknown]
  - Orthostatic hypotension [Recovered/Resolved]
  - Balance disorder [Recovered/Resolved]
  - Pulmonary oedema [Recovered/Resolved]
  - Pulmonary thrombosis [Unknown]
  - Dyspnoea [Recovering/Resolving]
  - Malaise [Unknown]
  - Joint swelling [Recovering/Resolving]
  - Intervertebral disc degeneration [Not Recovered/Not Resolved]
  - Lumbar spinal stenosis [Not Recovered/Not Resolved]
  - Back pain [Not Recovered/Not Resolved]
  - Drug dose omission [Recovered/Resolved]
